FAERS Safety Report 5425332-X (Version None)
Quarter: 2007Q3

REPORT INFORMATION
  Report Type: 
  Country: None (occurrence: None)
  Receive Date: 20070824
  Receipt Date: 20070817
  Transmission Date: 20080115
  Serious: Yes (Hospitalization)
  Sender: FDA-Public Use
  Company Number: AT-SHR-AT-2007-030625

PATIENT
  Age: 68 Year
  Sex: Female

DRUGS (1)
  1. ULTRAVIST 370 [Suspect]
     Dosage: 100 ML, 1 DOSE
     Route: 042
     Dates: start: 20070802, end: 20070801

REACTIONS (3)
  - CONVERSION DISORDER [None]
  - SENSATION OF FOREIGN BODY [None]
  - TREMOR [None]
